FAERS Safety Report 16998921 (Version 1)
Quarter: 2019Q4

REPORT INFORMATION
  Report Type: Spontaneous
  Country: US (occurrence: US)
  Receive Date: 20191105
  Receipt Date: 20191105
  Transmission Date: 20200122
  Serious: No
  Sender: FDA-Public Use
  Company Number: US-RADIUS HEALTH INC.-2019US003119

PATIENT
  Age: 58 Year
  Sex: Female

DRUGS (1)
  1. TYMLOS [Suspect]
     Active Substance: ABALOPARATIDE
     Indication: OSTEOPOROSIS POSTMENOPAUSAL
     Dosage: 80 MCG, QD
     Route: 058
     Dates: start: 20190808

REACTIONS (13)
  - Bone pain [Not Recovered/Not Resolved]
  - Muscle spasms [Unknown]
  - Syncope [Unknown]
  - Blood calcium decreased [Unknown]
  - Contusion [Unknown]
  - Arthralgia [Unknown]
  - Tachycardia [Unknown]
  - Dizziness [Unknown]
  - Vertigo [Unknown]
  - Blood alkaline phosphatase increased [Unknown]
  - Tunnel vision [Unknown]
  - Feeling hot [Unknown]
  - Palpitations [Not Recovered/Not Resolved]

NARRATIVE: CASE EVENT DATE: 20190903
